FAERS Safety Report 25583481 (Version 2)
Quarter: 2025Q3

REPORT INFORMATION
  Report Type: Report from Study
  Country: US (occurrence: US)
  Receive Date: 20250721
  Receipt Date: 20250808
  Transmission Date: 20251020
  Serious: Yes (Other)
  Sender: AUROBINDO
  Company Number: US-AUROBINDO-AUR-APL-2025-036552

PATIENT
  Age: 77 Year
  Sex: Male

DRUGS (2)
  1. METHOTREXATE [Suspect]
     Active Substance: METHOTREXATE
     Indication: Drug therapy
     Route: 065
  2. PREDNISONE [Suspect]
     Active Substance: PREDNISONE
     Indication: Drug therapy
     Route: 065

REACTIONS (3)
  - Uveitis [Unknown]
  - Viral load increased [Unknown]
  - Cytomegalovirus infection [Unknown]
